FAERS Safety Report 5272110-0 (Version None)
Quarter: 2007Q1

REPORT INFORMATION
  Report Type: 
  Country: None (occurrence: None)
  Receive Date: 20070320
  Receipt Date: 20070320
  Transmission Date: 20070707
  Serious: Yes (Hospitalization)
  Sender: FDA-Public Use
  Company Number: None

PATIENT
  Age: 55 Year
  Sex: Male
  Weight: 93.8946 kg

DRUGS (1)
  1. DEPAKOTE [Suspect]
     Indication: BIPOLAR DISORDER
     Dosage: 500MG BID PO
     Route: 048

REACTIONS (4)
  - ASTERIXIS [None]
  - COORDINATION ABNORMAL [None]
  - HEPATIC ENCEPHALOPATHY [None]
  - MYOCLONUS [None]
